FAERS Safety Report 5090645-0 (Version None)
Quarter: 2006Q3

REPORT INFORMATION
  Report Type: 
  Country: None (occurrence: None)
  Receive Date: 20060828
  Receipt Date: 20060816
  Transmission Date: 20061208
  Serious: Yes (Hospitalization)
  Sender: FDA-Public Use
  Company Number: GB-BRISTOL-MYERS SQUIBB COMPANY-13476304

PATIENT
  Age: 40 Year
  Sex: Male

DRUGS (3)
  1. SUSTIVA [Suspect]
     Route: 048
     Dates: start: 20060601
  2. KIVEXA [Suspect]
     Indication: HIV INFECTION
     Dosage: ABACAVIR 600 MG + LAMIVUDINE 300 MG
     Dates: start: 20060601
  3. SEPTRIN [Suspect]
     Indication: INFECTION PROPHYLAXIS
     Dates: start: 20060601

REACTIONS (4)
  - BODY TEMPERATURE INCREASED [None]
  - HYPOTENSION [None]
  - MALAISE [None]
  - OXYGEN SATURATION DECREASED [None]
